FAERS Safety Report 4372270-X (Version None)
Quarter: 2004Q2

REPORT INFORMATION
  Report Type: 
  Country: None (occurrence: None)
  Receive Date: 20040602
  Receipt Date: 20040524
  Transmission Date: 20050107
  Serious: Yes (Death)
  Sender: FDA-Public Use
  Company Number: 2004215208FR

PATIENT
  Age: 76 Year
  Sex: Male

DRUGS (5)
  1. FRAGMIN [Suspect]
     Dates: end: 20031203
  2. PREVISCAN (FLUINDIONE) [Suspect]
     Dosage: 20 MG, ORAL
     Route: 048
     Dates: end: 20031126
  3. CORDARONE [Concomitant]
  4. CANDESARTAN (CANDESARTAN) [Concomitant]
  5. PROPOXYPHENE HCL [Concomitant]

REACTIONS (5)
  - CEREBRAL HAEMORRHAGE [None]
  - CEREBRAL ISCHAEMIA [None]
  - HAEMATOMA [None]
  - INTRACRANIAL PRESSURE INCREASED [None]
  - MENINGORRHAGIA [None]
